FAERS Safety Report 9277491 (Version 1)
Quarter: 2013Q2

REPORT INFORMATION
  Report Type: Spontaneous
  Country: TW (occurrence: TW)
  Receive Date: 20130508
  Receipt Date: 20130508
  Transmission Date: 20140414
  Serious: Yes (Hospitalization)
  Sender: FDA-Public Use
  Company Number: TW-MYLANLABS-2013S1009194

PATIENT
  Age: 2 Year
  Sex: Female
  Weight: 11 kg

DRUGS (8)
  1. TETRACOSACTIDE [Suspect]
     Indication: INFANTILE SPASMS
     Dosage: 0.025 MG/KG/DAY FOR 2W, TAPERED TO HALF FREQUENCY EVERY 2W FOR 8W TOTAL
     Route: 030
  2. TETRACOSACTIDE [Suspect]
     Indication: INFANTILE SPASMS
     Dosage: 0.025 MG/KG/DAY FOR 2W; THEN 0.025 MG/KG EVERY 2ND DAY
     Route: 030
  3. TETRACOSACTIDE [Suspect]
     Indication: INFANTILE SPASMS
     Dosage: 0.025 MG/KG EVERY 2ND DAY
     Route: 030
  4. PNEUMOCOCCAL CONJUGATE VACCINE [Suspect]
     Indication: IMMUNISATION
     Dosage: 3 DOSES RECEIVED AT 9M, 10M, 12M OF AGE
     Route: 065
  5. VIGABATRIN [Concomitant]
     Indication: INFANTILE SPASMS
     Route: 065
  6. LAMOTRIGINE [Concomitant]
     Indication: INFANTILE SPASMS
     Route: 065
  7. PHENOBARBITAL [Concomitant]
     Indication: INFANTILE SPASMS
     Route: 065
  8. OXCARBAZEPINE [Concomitant]
     Indication: INFANTILE SPASMS
     Route: 065

REACTIONS (4)
  - Vaccination failure [Recovering/Resolving]
  - Pneumococcal bacteraemia [Recovering/Resolving]
  - Bronchopneumonia [Recovering/Resolving]
  - Lung consolidation [None]
